FAERS Safety Report 16202766 (Version 1)
Quarter: 2019Q2

REPORT INFORMATION
  Report Type: Spontaneous
  Country: US (occurrence: US)
  Receive Date: 20190416
  Receipt Date: 20190416
  Transmission Date: 20190711
  Serious: No
  Sender: FDA-Public Use
  Company Number: US-ALLERGAN-1825895US

PATIENT
  Age: 76 Year
  Sex: Female

DRUGS (1)
  1. TIMOLOL MALEATE. [Suspect]
     Active Substance: TIMOLOL MALEATE
     Indication: INTRAOCULAR PRESSURE INCREASED
     Dosage: UNK UNK, BID
     Route: 047
     Dates: start: 201804

REACTIONS (4)
  - Ocular hyperaemia [Recovered/Resolved]
  - Vision blurred [Not Recovered/Not Resolved]
  - Eye pain [Recovered/Resolved]
  - Eye irritation [Unknown]

NARRATIVE: CASE EVENT DATE: 20180508
